FAERS Safety Report 18096122 (Version 19)
Quarter: 2022Q2

REPORT INFORMATION
  Report Type: Spontaneous
  Country: US (occurrence: US)
  Receive Date: 20200730
  Receipt Date: 20220407
  Transmission Date: 20220720
  Serious: Yes (Other)
  Sender: FDA-Public Use
  Company Number: US-MALLINCKRODT-T202002180

PATIENT
  Sex: Male
  Weight: 70 kg

DRUGS (19)
  1. H.P. ACTHAR [Suspect]
     Active Substance: CORTICOTROPIN
     Indication: Pulmonary sarcoidosis
     Dosage: 40 UNITS, THREE TIMES WEEKLY
     Route: 058
  2. H.P. ACTHAR [Suspect]
     Active Substance: CORTICOTROPIN
     Dosage: UNK, TWICE A WEEK
     Route: 065
  3. H.P. ACTHAR [Suspect]
     Active Substance: CORTICOTROPIN
     Dosage: 40 UNITS ONCE WEEKLY (MONDAY)
     Route: 058
  4. H.P. ACTHAR [Suspect]
     Active Substance: CORTICOTROPIN
     Dosage: 60 UNITS/ 0.75 MILLILITER THREE TIMES WEEKLY
     Route: 058
     Dates: start: 2020, end: 2020
  5. H.P. ACTHAR [Suspect]
     Active Substance: CORTICOTROPIN
     Dosage: 80 UNITS THREE TIMES WEEKLY
     Route: 065
     Dates: start: 2020, end: 2020
  6. H.P. ACTHAR [Suspect]
     Active Substance: CORTICOTROPIN
     Dosage: 80 UNITS TWICE WEEKLY
     Route: 065
     Dates: start: 2020, end: 2020
  7. H.P. ACTHAR [Suspect]
     Active Substance: CORTICOTROPIN
     Dosage: 60 UNITS, THREE TIMES A WEEK
     Route: 058
  8. H.P. ACTHAR [Suspect]
     Active Substance: CORTICOTROPIN
     Dosage: 40 UNITS THREE TIMES A WEEK
     Route: 058
     Dates: start: 20201221
  9. H.P. ACTHAR [Suspect]
     Active Substance: CORTICOTROPIN
     Dosage: 60 UNITS, TWICE PER WEEK
     Route: 065
     Dates: start: 2020, end: 20210326
  10. H.P. ACTHAR [Suspect]
     Active Substance: CORTICOTROPIN
     Dosage: UNK
     Route: 065
     Dates: start: 2021
  11. H.P. ACTHAR [Suspect]
     Active Substance: CORTICOTROPIN
     Dosage: 0.5 MILLILITER, TID
     Route: 065
     Dates: start: 202109
  12. H.P. ACTHAR [Suspect]
     Active Substance: CORTICOTROPIN
     Dosage: 60 UNITS, THREE TIME A WEEK (ON M/W/F)
     Route: 058
  13. CRESTOR [Concomitant]
     Active Substance: ROSUVASTATIN CALCIUM
     Indication: Product used for unknown indication
     Dosage: UNK
     Route: 065
  14. DUREZOL [Concomitant]
     Active Substance: DIFLUPREDNATE
     Indication: Product used for unknown indication
     Dosage: UNK
     Route: 065
  15. BREO ELLIPTA [Concomitant]
     Active Substance: FLUTICASONE FUROATE\VILANTEROL TRIFENATATE
     Indication: Product used for unknown indication
     Dosage: 100-25 MCG
     Route: 065
  16. VENTOLIN HFA [Concomitant]
     Active Substance: ALBUTEROL SULFATE
     Indication: Product used for unknown indication
     Dosage: 90 MCG, HFA AER AD
     Route: 065
  17. VIAGRA [Concomitant]
     Active Substance: SILDENAFIL CITRATE
     Indication: Product used for unknown indication
     Dosage: 100 MG
     Route: 065
  18. COVID-19 VACCINE [Concomitant]
     Indication: Product used for unknown indication
     Dosage: UNK
     Route: 065
  19. INFLUENZA VIRUS VACCINE [Concomitant]
     Active Substance: INFLUENZA VIRUS VACCINE
     Indication: Product used for unknown indication
     Dosage: UNK
     Route: 065

REACTIONS (32)
  - Nephrolithiasis [Unknown]
  - Cataract [Unknown]
  - Cataract operation [Unknown]
  - Pulmonary thrombosis [Unknown]
  - Ureteral disorder [Not Recovered/Not Resolved]
  - Feeling abnormal [Not Recovered/Not Resolved]
  - Arthralgia [Unknown]
  - Skin odour abnormal [Unknown]
  - Anxiety [Not Recovered/Not Resolved]
  - Biopsy skin [Unknown]
  - Agitation [Not Recovered/Not Resolved]
  - Psoriasis [Recovering/Resolving]
  - Psychomotor hyperactivity [Not Recovered/Not Resolved]
  - Chills [Unknown]
  - Chest pain [Unknown]
  - Dyspnoea [Unknown]
  - Weight decreased [Unknown]
  - Sinus congestion [Not Recovered/Not Resolved]
  - Back pain [Not Recovered/Not Resolved]
  - Hair growth abnormal [Not Recovered/Not Resolved]
  - Depression [Not Recovered/Not Resolved]
  - Pyrexia [Unknown]
  - Mood altered [Recovering/Resolving]
  - Sleep disorder [Not Recovered/Not Resolved]
  - Nasal congestion [Not Recovered/Not Resolved]
  - Rash [Recovered/Resolved]
  - Fatigue [Not Recovered/Not Resolved]
  - Injection site pain [Unknown]
  - Injury associated with device [Not Recovered/Not Resolved]
  - Drug ineffective [Not Recovered/Not Resolved]
  - Product dose omission issue [Recovered/Resolved]
  - Product supply issue [Not Recovered/Not Resolved]

NARRATIVE: CASE EVENT DATE: 20200101
